FAERS Safety Report 24899542 (Version 1)
Quarter: 2025Q1

REPORT INFORMATION
  Report Type: Report from Study
  Country: CA (occurrence: CA)
  Receive Date: 20250129
  Receipt Date: 20250129
  Transmission Date: 20250409
  Serious: Yes (Death, Hospitalization)
  Sender: MYLAN
  Company Number: CA-MYLANLABS-2024M1098040

PATIENT
  Age: 59 Year
  Sex: Male

DRUGS (3)
  1. CLOZAPINE [Suspect]
     Active Substance: CLOZAPINE
     Indication: Product used for unknown indication
     Route: 065
     Dates: start: 201903
  2. SEROQUEL [Concomitant]
     Active Substance: QUETIAPINE FUMARATE
     Route: 065
  3. CLONAZEPAM [Concomitant]
     Active Substance: CLONAZEPAM
     Route: 065

REACTIONS (3)
  - Death [Fatal]
  - Respiratory failure [Unknown]
  - Overweight [Unknown]

NARRATIVE: CASE EVENT DATE: 20241011
